FAERS Safety Report 6369557-8 (Version None)
Quarter: 2009Q3

REPORT INFORMATION
  Report Type: 
  Country: None (occurrence: None)
  Receive Date: 20090923
  Receipt Date: 20090917
  Transmission Date: 20100115
  Serious: Yes (Hospitalization)
  Sender: FDA-Public Use
  Company Number: JP-JNJFOC-20090803443

PATIENT
  Sex: Male

DRUGS (4)
  1. TOPINA [Suspect]
     Indication: EPILEPSY
     Dosage: 70 MG, 2 TIMES A DAY
     Route: 048
     Dates: start: 20071210, end: 20090607
  2. HYSERENIN [Concomitant]
     Indication: EPILEPSY
     Route: 048
  3. POTASSIUM BROMIDE [Concomitant]
     Indication: EPILEPSY
     Route: 048
  4. LAMICTAL [Concomitant]
     Indication: EPILEPSY
     Route: 048

REACTIONS (3)
  - CALCULUS URINARY [None]
  - DEHYDRATION [None]
  - HYPERCALCAEMIA [None]
